FAERS Safety Report 6123791-0 (Version None)
Quarter: 2009Q1

REPORT INFORMATION
  Report Type: 
  Country: None (occurrence: None)
  Receive Date: 20090319
  Receipt Date: 20090309
  Transmission Date: 20090719
  Serious: Yes (Disabling)
  Sender: FDA-Public Use
  Company Number: FR-SP-2008-03775

PATIENT
  Age: 76 Year
  Sex: Male
  Weight: 70 kg

DRUGS (2)
  1. IMMUCYST [Suspect]
     Indication: BLADDER TRANSITIONAL CELL CARCINOMA
     Route: 043
     Dates: start: 20080414, end: 20080610
  2. IMMUCYST [Suspect]
     Route: 043
     Dates: start: 20080414, end: 20080610

REACTIONS (2)
  - HAEMATURIA [None]
  - SUDDEN HEARING LOSS [None]
